FAERS Safety Report 24575515 (Version 1)
Quarter: 2024Q4

REPORT INFORMATION
  Report Type: Spontaneous
  Country: US (occurrence: None)
  Receive Date: 20241101
  Receipt Date: 20241101
  Transmission Date: 20250114
  Serious: Yes (Hospitalization)
  Sender: Public
  Company Number: None

PATIENT
  Age: 52 Year
  Sex: Male
  Weight: 183 kg

DRUGS (1)
  1. QUETIAPINE FUMARATE [Suspect]
     Active Substance: QUETIAPINE FUMARATE
     Indication: Depression
     Route: 048
     Dates: start: 20240515

REACTIONS (8)
  - Priapism [None]
  - Pruritus [None]
  - Muscle spasms [None]
  - Pain [None]
  - Skin discolouration [None]
  - Penis disorder [None]
  - Penile contusion [None]
  - Therapy cessation [None]

NARRATIVE: CASE EVENT DATE: 20240621
